FAERS Safety Report 6180312-4 (Version None)
Quarter: 2009Q2

REPORT INFORMATION
  Report Type: 
  Country: None (occurrence: None)
  Receive Date: 20090504
  Receipt Date: 20090504
  Transmission Date: 20091009
  Serious: No
  Sender: FDA-Public Use
  Company Number: None

PATIENT
  Sex: Female
  Weight: 61.64 kg

DRUGS (10)
  1. ORENCIA [Suspect]
     Dosage: 250MG VIAL 750 MG
     Route: 040
     Dates: start: 20080808, end: 20090501
  2. ASPIRIN [Concomitant]
  3. CELEXA [Concomitant]
  4. ELIDEL [Concomitant]
  5. FOSAMAX [Concomitant]
  6. LIPITOR [Concomitant]
  7. LUSTRA CREAM [Concomitant]
  8. MEDROL (METHYLPREDNISOLONE PO) [Concomitant]
  9. MORPHINE [Concomitant]
  10. NEURONTIN [Concomitant]

REACTIONS (1)
  - PYREXIA [None]
